FAERS Safety Report 6230112-1 (Version None)
Quarter: 2009Q2

REPORT INFORMATION
  Report Type: 
  Country: None (occurrence: None)
  Receive Date: 20090615
  Receipt Date: 20090525
  Transmission Date: 20091009
  Serious: Yes (Other)
  Sender: FDA-Public Use
  Company Number: DE-GENENTECH-284655

PATIENT

DRUGS (2)
  1. RITUXIMAB [Suspect]
     Indication: LYMPHOMA
     Dosage: 375 MG/M2, X1
     Route: 065
  2. CYCLOSPORINE [Concomitant]
     Indication: PROPHYLAXIS

REACTIONS (1)
  - GRAFT VERSUS HOST DISEASE [None]
